FAERS Safety Report 26041040 (Version 1)
Quarter: 2025Q4

REPORT INFORMATION
  Report Type: Spontaneous
  Country: US (occurrence: None)
  Receive Date: 20251112
  Receipt Date: 20251112
  Transmission Date: 20260118
  Serious: Yes (Hospitalization)
  Sender: FDA-CTU
  Company Number: None

PATIENT
  Age: 74 Year
  Sex: Female
  Weight: 65.25 kg

DRUGS (2)
  1. KISUNLA [Suspect]
     Active Substance: DONANEMAB-AZBT
     Indication: Dementia Alzheimer^s type
     Dosage: 350 MG Q4W INTRAVENOUS ?
     Route: 042
     Dates: start: 20251001, end: 20251021
  2. KISUNLA [Concomitant]
     Active Substance: DONANEMAB-AZBT
     Dates: start: 20251001

REACTIONS (2)
  - Cerebrovascular accident [None]
  - Headache [None]

NARRATIVE: CASE EVENT DATE: 20251021
